FAERS Safety Report 4506993-6 (Version None)
Quarter: 2004Q4

REPORT INFORMATION
  Report Type: 
  Country: None (occurrence: None)
  Receive Date: 20041117
  Receipt Date: 20041104
  Transmission Date: 20050328
  Serious: Yes (Hospitalization)
  Sender: FDA-Public Use
  Company Number: 2004AP05684

PATIENT
  Age: 51 Year
  Sex: Male

DRUGS (2)
  1. IRESSA [Suspect]
     Indication: LUNG NEOPLASM MALIGNANT
     Dosage: 250 MG DAILY PO
     Route: 048
     Dates: start: 20031011, end: 20041101
  2. CHEMOTHERAPY [Concomitant]

REACTIONS (2)
  - INFECTION [None]
  - INTERSTITIAL LUNG DISEASE [None]
